FAERS Safety Report 5413713-X (Version None)
Quarter: 2007Q3

REPORT INFORMATION
  Report Type: 
  Country: None (occurrence: None)
  Receive Date: 20070814
  Receipt Date: 20070803
  Transmission Date: 20080115
  Serious: Yes (Other)
  Sender: FDA-Public Use
  Company Number: B0482865A

PATIENT
  Age: 34 Year
  Sex: Male
  Weight: 72 kg

DRUGS (1)
  1. ZYBAN [Suspect]
     Indication: DRUG USE FOR UNKNOWN INDICATION
     Dosage: 150MG PER DAY
     Route: 048
     Dates: start: 20070713, end: 20070724

REACTIONS (5)
  - DIZZINESS [None]
  - HALLUCINATION [None]
  - PSYCHOTIC DISORDER [None]
  - TACHYCARDIA [None]
  - TREMOR [None]
